FAERS Safety Report 8834850 (Version 1)
Quarter: 2012Q4

REPORT INFORMATION
  Report Type: 
  Country: AU (occurrence: AU)
  Receive Date: 20121010
  Receipt Date: 20121010
  Transmission Date: 20130627
  Serious: Yes (Other)
  Sender: FDA-Public Use
  Company Number: AU-ROCHE-CID000000002187365

PATIENT
  Age: 80 Year
  Sex: Male

DRUGS (13)
  1. LUCENTIS [Suspect]
     Indication: AGE-RELATED MACULAR DEGENERATION
     Route: 050
     Dates: start: 20090616
  2. LUCENTIS [Suspect]
     Route: 050
  3. LUCENTIS [Suspect]
     Route: 050
  4. LUCENTIS [Suspect]
     Route: 050
  5. LUCENTIS [Suspect]
     Route: 050
  6. LUCENTIS [Suspect]
     Route: 050
  7. LUCENTIS [Suspect]
     Route: 050
  8. LUCENTIS [Suspect]
     Route: 050
  9. LUCENTIS [Suspect]
     Route: 050
  10. LUCENTIS [Suspect]
     Route: 050
  11. LUCENTIS [Suspect]
     Route: 050
  12. LUCENTIS [Suspect]
     Route: 050
     Dates: start: 20110225
  13. CHLORSIG [Concomitant]
     Route: 065

REACTIONS (3)
  - Eye inflammation [Recovered/Resolved]
  - Visual acuity reduced [Recovered/Resolved]
  - Incorrect storage of drug [Unknown]
